FAERS Safety Report 18058971 (Version 1)
Quarter: 2020Q3

REPORT INFORMATION
  Report Type: Spontaneous
  Country: US (occurrence: US)
  Receive Date: 20200723
  Receipt Date: 20200723
  Transmission Date: 20201103
  Serious: Yes (Hospitalization)
  Sender: FDA-Public Use
  Company Number: US-SA-2020SA186304

PATIENT

DRUGS (2)
  1. JEVTANA [Suspect]
     Active Substance: CABAZITAXEL
     Dosage: STRENGTH: 60 MG
     Dates: start: 20200625, end: 20200625
  2. JEVTANA [Suspect]
     Active Substance: CABAZITAXEL
     Indication: PROSTATE CANCER
     Dosage: STRENGTH: 60 MG
     Dates: start: 20200604, end: 20200604

REACTIONS (2)
  - Haematuria [Not Recovered/Not Resolved]
  - Product dose omission issue [Unknown]
